FAERS Safety Report 23041456 (Version 1)
Quarter: 2023Q4

REPORT INFORMATION
  Report Type: Report from Study
  Country: US (occurrence: US)
  Receive Date: 20231007
  Receipt Date: 20231007
  Transmission Date: 20240110
  Serious: No
  Sender: FDA-Public Use
  Company Number: US-002147023-NVSC2023US215989

PATIENT
  Sex: Male

DRUGS (2)
  1. LEQVIO [Suspect]
     Active Substance: INCLISIRAN SODIUM
     Indication: Product used for unknown indication
     Dosage: UNK
     Route: 058
     Dates: start: 20221221
  2. LEQVIO [Suspect]
     Active Substance: INCLISIRAN SODIUM
     Dosage: UNK (THIRD INJECTION)
     Route: 065
     Dates: start: 20231002

REACTIONS (1)
  - Abdominal distension [Unknown]
